FAERS Safety Report 8132720-X (Version None)
Quarter: 2012Q1

REPORT INFORMATION
  Report Type: 
  Country: None (occurrence: None)
  Receive Date: 20120213
  Receipt Date: 20120210
  Transmission Date: 20120608
  Serious: Yes (Hospitalization, Other)
  Sender: FDA-Public Use
  Company Number: US-PFIZER INC-2012016839

PATIENT
  Sex: Female
  Weight: 63 kg

DRUGS (2)
  1. NEURONTIN [Suspect]
     Indication: FIBROMYALGIA
     Dosage: 300 MG, 3X/DAY
  2. LYRICA [Suspect]
     Indication: FIBROMYALGIA
     Dosage: 150 MG, 2X/DAY
     Route: 048
     Dates: end: 20120101

REACTIONS (7)
  - THYROIDECTOMY [None]
  - CARDIAC DISORDER [None]
  - URINARY TRACT INFECTION [None]
  - CONTUSION [None]
  - CHEST PAIN [None]
  - PAIN [None]
  - PRURITUS [None]
